FAERS Safety Report 7215185-1 (Version None)
Quarter: 2011Q1

REPORT INFORMATION
  Report Type: 
  Country: None (occurrence: None)
  Receive Date: 20110107
  Receipt Date: 20101006
  Transmission Date: 20110831
  Serious: No
  Sender: FDA-Public Use
  Company Number: A0886227A

PATIENT
  Sex: Female

DRUGS (9)
  1. LOVASTATIN [Concomitant]
  2. HYZAAR [Concomitant]
  3. LOVAZA [Suspect]
     Dosage: 4CAP PER DAY
     Route: 048
  4. OMEPRAZOLE [Concomitant]
  5. ESTRADIOL [Concomitant]
  6. CARVEDILOL [Concomitant]
  7. JANUMET [Concomitant]
  8. EFFEXOR XR [Concomitant]
  9. TRAMADOL [Concomitant]

REACTIONS (1)
  - AGEUSIA [None]
